FAERS Safety Report 4917692-0 (Version None)
Quarter: 2006Q1

REPORT INFORMATION
  Report Type: 
  Country: None (occurrence: None)
  Receive Date: 20060221
  Receipt Date: 20060130
  Transmission Date: 20060701
  Serious: Yes (Other)
  Sender: FDA-Public Use
  Company Number: JP-ROCHE-434531

PATIENT
  Age: 42 Year
  Sex: Male
  Weight: 48 kg

DRUGS (7)
  1. TAMIFLU [Suspect]
     Route: 048
     Dates: start: 20060129, end: 20060130
  2. PHYSIO 35 [Concomitant]
     Route: 041
     Dates: start: 20060126
  3. SODIUM CHLORIDE [Concomitant]
     Dosage: REPORTED AS ISOTONIC SODIUM CHLORIDE SOLUTION. SODIUM CHLORIDE ALSO REPORTED.
     Route: 041
     Dates: start: 20060126
  4. SOLITA-T [Concomitant]
     Dosage: REPORTED AS SOLITA-T NO.1 ()
     Route: 041
     Dates: start: 20060126
  5. PL [Concomitant]
     Route: 048
     Dates: start: 20060128
  6. ACETAMINOPHEN [Concomitant]
     Route: 048
     Dates: start: 20060129
  7. GLYCEOL [Concomitant]
     Route: 041
     Dates: start: 20060130, end: 20060202

REACTIONS (3)
  - ABNORMAL BEHAVIOUR [None]
  - REFUSAL OF TREATMENT BY PATIENT [None]
  - RESTLESSNESS [None]
